FAERS Safety Report 8076849-3 (Version None)
Quarter: 2012Q1

REPORT INFORMATION
  Report Type: 
  Country: None (occurrence: None)
  Receive Date: 20120127
  Receipt Date: 20120117
  Transmission Date: 20120608
  Serious: Yes (Hospitalization)
  Sender: FDA-Public Use
  Company Number: US-JNJFOC-20120107468

PATIENT
  Sex: Female
  Weight: 56.7 kg

DRUGS (4)
  1. CERTOLIZUMAB PEGOL [Concomitant]
  2. LOMOTIL [Concomitant]
  3. INFLIXIMAB, RECOMBINANT [Suspect]
     Indication: CROHN'S DISEASE
     Dosage: 10 INFUSIONS IN TOTAL BETWEEN THIS TIME FRAME
     Route: 042
     Dates: start: 20081119, end: 20100210
  4. ANTIBIOTICS [Concomitant]

REACTIONS (1)
  - THYROID CANCER [None]
